FAERS Safety Report 8967735 (Version 1)
Quarter: 2012Q4

REPORT INFORMATION
  Report Type: Spontaneous
  Country: NL (occurrence: None)
  Receive Date: 20121210
  Receipt Date: 20121210
  Transmission Date: 20130627
  Serious: Yes (Hospitalization)
  Sender: FDA-Public Use
  Company Number: DKLU1086711

PATIENT
  Age: 10 Year
  Sex: Male
  Weight: 30 kg

DRUGS (10)
  1. COSMEGEN [Suspect]
     Dosage: once, intravenous (not otherwise specified)
     Dates: start: 20110220
  2. BEVACIZUMAB [Suspect]
     Dosage: once, intravenous (not otherwise specified)
     Dates: start: 20110220
  3. VINCRISTINE [Suspect]
     Dosage: once, intravenous (not otherwise specified)
     Dates: start: 20110220
  4. DOXORUBICIN (DOXORUBICIN) (DOXORUBICIN) [Suspect]
     Dosage: twice, intrvenous (not otherwise specified)
     Dates: start: 20110220
  5. IFOSFAMIDE [Suspect]
     Dosage: twice, intravenous (not otherwise specified)
     Dates: start: 20110220
  6. AMITRIPTYLINE (AMITRIPTYLINE) [Concomitant]
  7. CIPROFLOXACIN (CIPROFLOXACIN) [Concomitant]
  8. MACROGOL (MACROGOL) [Concomitant]
  9. NYSTATIN (NYSTATIN) [Concomitant]
  10. PARACETAMOL (PARACETAMOL) [Concomitant]

REACTIONS (2)
  - Constipation [None]
  - Abdominal pain [None]
